FAERS Safety Report 14963899 (Version 2)
Quarter: 2018Q2

REPORT INFORMATION
  Report Type: Spontaneous
  Country: GB (occurrence: GB)
  Receive Date: 20180601
  Receipt Date: 20180619
  Transmission Date: 20180711
  Serious: Yes (Hospitalization, Other)
  Sender: FDA-Public Use
  Company Number: GB-SA-2018SA138446

PATIENT
  Sex: Male

DRUGS (1)
  1. INSULIN GLARGINE [Suspect]
     Active Substance: INSULIN GLARGINE
     Dosage: UNK UNK,UNK
     Route: 065

REACTIONS (10)
  - Skin burning sensation [Unknown]
  - Weight decreased [Unknown]
  - Pruritus [Unknown]
  - Formication [Unknown]
  - Adverse event [Unknown]
  - Pain [Unknown]
  - Suicidal behaviour [Unknown]
  - Insomnia [Unknown]
  - Paraesthesia [Unknown]
  - Fatigue [Unknown]
